FAERS Safety Report 9637459 (Version 3)
Quarter: 2013Q4

REPORT INFORMATION
  Report Type: Spontaneous
  Country: US (occurrence: None)
  Receive Date: 20131018
  Receipt Date: 20131224
  Transmission Date: 20140711
  Serious: Yes (Hospitalization)
  Sender: FDA-Public Use
  Company Number: US-JNJFOC-20131007108

PATIENT
  Age: 80 Year
  Sex: Male
  Weight: 97.2 kg

DRUGS (1)
  1. DECITABINE [Suspect]
     Indication: ACUTE MYELOID LEUKAEMIA
     Route: 042
     Dates: start: 20121204

REACTIONS (3)
  - Cerebrovascular accident [None]
  - Pneumonia [None]
  - Platelet count decreased [None]
